FAERS Safety Report 25171208 (Version 1)
Quarter: 2025Q2

REPORT INFORMATION
  Report Type: Spontaneous
  Country: FR (occurrence: FR)
  Receive Date: 20250408
  Receipt Date: 20250408
  Transmission Date: 20250717
  Serious: Yes (Hospitalization, Other)
  Sender: STRIDES
  Company Number: FR-STRIDES ARCOLAB LIMITED-2025SP004373

PATIENT
  Age: 74 Year
  Sex: Male

DRUGS (11)
  1. FUROSEMIDE [Interacting]
     Active Substance: FUROSEMIDE
     Indication: Cardiac failure
     Route: 065
  2. FUROSEMIDE [Interacting]
     Active Substance: FUROSEMIDE
     Indication: Chronic kidney disease
  3. METHOTREXATE [Interacting]
     Active Substance: METHOTREXATE
     Indication: Psoriatic arthropathy
     Route: 065
  4. MORPHINE SULFATE [Suspect]
     Active Substance: MORPHINE SULFATE
     Indication: Analgesic therapy
     Route: 065
  5. PANTOPRAZOLE [Interacting]
     Active Substance: PANTOPRAZOLE
     Indication: Product used for unknown indication
     Route: 065
  6. CEFTAZIDIME [Suspect]
     Active Substance: CEFTAZIDIME
     Indication: Product used for unknown indication
     Route: 065
  7. FOLATE SODIUM [Concomitant]
     Active Substance: FOLATE SODIUM
     Indication: Haematotoxicity
     Route: 065
  8. FOLATE SODIUM [Concomitant]
     Active Substance: FOLATE SODIUM
     Indication: Prophylaxis
  9. BISOPROLOL [Concomitant]
     Active Substance: BISOPROLOL
     Indication: Cardiac failure
     Route: 065
  10. APIXABAN [Concomitant]
     Active Substance: APIXABAN
     Indication: Product used for unknown indication
     Route: 065
  11. RAMIPRIL [Concomitant]
     Active Substance: RAMIPRIL
     Indication: Cardiac failure
     Route: 065

REACTIONS (4)
  - Drug interaction [Unknown]
  - Pancytopenia [Not Recovered/Not Resolved]
  - Myelosuppression [Not Recovered/Not Resolved]
  - Overdose [Unknown]
